FAERS Safety Report 25078852 (Version 1)
Quarter: 2025Q1

REPORT INFORMATION
  Report Type: Spontaneous
  Country: PL (occurrence: PL)
  Receive Date: 20250314
  Receipt Date: 20250314
  Transmission Date: 20250409
  Serious: Yes (Hospitalization, Other)
  Sender: REGENERON
  Company Number: PL-SA-2025SA073898

PATIENT
  Age: 67 Year
  Sex: Male

DRUGS (2)
  1. PRALUENT [Suspect]
     Active Substance: ALIROCUMAB
     Indication: Type IIa hyperlipidaemia
     Dosage: 300 MG, QM
     Route: 058
     Dates: start: 202402, end: 202404
  2. AZITHROMYCIN [Suspect]
     Active Substance: AZITHROMYCIN
     Indication: Respiratory tract infection

REACTIONS (4)
  - Drug interaction [Recovered/Resolved]
  - Anaphylactic shock [Recovered/Resolved]
  - Hypersensitivity [Recovered/Resolved]
  - Swelling face [Recovered/Resolved]

NARRATIVE: CASE EVENT DATE: 20240304
